FAERS Safety Report 5194587-1 (Version None)
Quarter: 2006Q4

REPORT INFORMATION
  Report Type: 
  Country: None (occurrence: None)
  Receive Date: 20061229
  Receipt Date: 20061220
  Transmission Date: 20070319
  Serious: Yes (Hospitalization, Other)
  Sender: FDA-Public Use
  Company Number: US-JNJFOC-20061202155

PATIENT
  Sex: Female
  Weight: 103.42 kg

DRUGS (3)
  1. REMICADE [Suspect]
     Route: 042
  2. REMICADE [Suspect]
     Indication: RHEUMATOID ARTHRITIS
     Route: 042
  3. PREDNISONE [Concomitant]
     Dosage: 10 MG

REACTIONS (4)
  - DRUG INEFFECTIVE [None]
  - FOOT FRACTURE [None]
  - IMPAIRED HEALING [None]
  - PAIN [None]
